FAERS Safety Report 7549083-0 (Version None)
Quarter: 2011Q2

REPORT INFORMATION
  Report Type: 
  Country: None (occurrence: None)
  Receive Date: 20110615
  Receipt Date: 20110601
  Transmission Date: 20111010
  Serious: Yes (Other)
  Sender: FDA-Public Use
  Company Number: JP-JNJFOC-20110602682

PATIENT
  Age: 5 Decade
  Sex: Male

DRUGS (2)
  1. MINOXIDIL [Suspect]
     Indication: ANDROGENETIC ALOPECIA
     Route: 061
  2. MINOXIDIL [Suspect]
     Route: 061

REACTIONS (1)
  - CEREBRAL INFARCTION [None]
